FAERS Safety Report 7523742-8 (Version None)
Quarter: 2011Q2

REPORT INFORMATION
  Report Type: 
  Country: None (occurrence: None)
  Receive Date: 20110603
  Receipt Date: 20110525
  Transmission Date: 20111010
  Serious: Yes (Other)
  Sender: FDA-Public Use
  Company Number: FR-ASTRAZENECA-2010SE56392

PATIENT
  Age: 23318 Day
  Sex: Female
  Weight: 70 kg

DRUGS (3)
  1. ACETAMINOPHEN [Concomitant]
  2. ARIMIDEX [Suspect]
     Indication: BREAST CANCER
     Route: 048
     Dates: start: 20100922
  3. OROCAL D3 [Concomitant]

REACTIONS (4)
  - FALL [None]
  - PHOTOPSIA [None]
  - HEADACHE [None]
  - MEMORY IMPAIRMENT [None]
